FAERS Safety Report 8002519-3 (Version None)
Quarter: 2011Q4

REPORT INFORMATION
  Report Type: 
  Country: None (occurrence: None)
  Receive Date: 20111222
  Receipt Date: 20111220
  Transmission Date: 20120403
  Serious: Yes (Hospitalization)
  Sender: FDA-Public Use
  Company Number: IT-PFIZER INC-2011182011

PATIENT
  Age: 48 Year
  Sex: Male

DRUGS (9)
  1. AULIN [Suspect]
     Indication: BACK PAIN
     Dosage: 100 MG, AS NEEDED
     Route: 048
     Dates: start: 20110101, end: 20110415
  2. TORADOL [Suspect]
     Indication: BACK PAIN
     Dosage: 40 GTT, DAILY
     Route: 048
     Dates: start: 20110325, end: 20110415
  3. ORUDIS [Suspect]
     Indication: BACK PAIN
     Dosage: 2 DF, DAILY
     Route: 048
     Dates: start: 20110415, end: 20110420
  4. TEVETENS [Concomitant]
  5. VOLTAREN [Suspect]
     Indication: BACK PAIN
     Dosage: 75 MG, 1X/DAY
     Route: 048
     Dates: start: 20110101, end: 20110415
  6. ARTHROTEC [Suspect]
     Dosage: 200MCG/75MG
     Route: 048
     Dates: start: 20110315, end: 20110325
  7. TRAMADOL HCL [Concomitant]
  8. TENORETIC 100 [Suspect]
     Indication: HYPERTENSION
     Dosage: 50 MG/12.5 MG
     Route: 048
     Dates: start: 20060421, end: 20110421
  9. DEURSIL [Concomitant]

REACTIONS (2)
  - RETROPERITONEAL FIBROSIS [None]
  - RENAL FAILURE ACUTE [None]
